FAERS Safety Report 21618296 (Version 1)
Quarter: 2022Q4

REPORT INFORMATION
  Report Type: Spontaneous
  Country: NL (occurrence: NL)
  Receive Date: 20221119
  Receipt Date: 20221119
  Transmission Date: 20230113
  Serious: Yes (Other)
  Sender: FDA-Public Use
  Company Number: None

PATIENT
  Sex: Female

DRUGS (11)
  1. APIXABAN [Suspect]
     Active Substance: APIXABAN
     Indication: Atrial fibrillation
     Dosage: 2 TIMES PER DAY 1 PIECE, STRENGTH: 5 MG
     Dates: start: 20220821, end: 20220913
  2. FLECAINIDE [Concomitant]
     Active Substance: FLECAINIDE
     Dosage: MODIFIED-RELEASE CAPSULE, STRENGTH:150 MG
  3. CARBOMER [Concomitant]
     Active Substance: CARBOMER
     Dosage: 2 MG/G (CARBOMER 980) / LIPOSIC 2 MG/G TUBE 10 G
  4. MOMETASONE [Concomitant]
     Active Substance: MOMETASONE
     Dosage: 50 UG/DO / NASONEX NASAL SPRAY 50 MCG/DO 140 DO
  5. LORAZEPAM [Concomitant]
     Active Substance: LORAZEPAM
     Dosage: STRENGTH: 2,5 MG (MILLIGRAM)
  6. VERAPAMIL [Concomitant]
     Active Substance: VERAPAMIL HYDROCHLORIDE
     Dosage: STRENGTH: 240 MG (MILLIGRAM)
  7. DESOXIMETASONE [Concomitant]
     Active Substance: DESOXIMETASONE
     Dosage: EMULSION CUTANEOUS 2.5 MG/G / TOPICAL O/W EMULSION 2.5 MG/G
  8. MINERAL OIL EMULSION\PETROLATUM [Concomitant]
     Active Substance: MINERAL OIL EMULSION\PETROLATUM
     Dosage: TUBE 3.5 G
  9. HYDROCORTISONE [Concomitant]
     Active Substance: HYDROCORTISONE
     Dosage: SOLUTION CUTANEOUS 1 MG/ML / LOCOID SCALP LOTION 1 MG/ML
  10. OMEPRAZOLE [Concomitant]
     Active Substance: OMEPRAZOLE
     Dosage: STRENGTH: 20 MG (MILLIGRAM)
  11. LEVOTHYROXINE [Concomitant]
     Active Substance: LEVOTHYROXINE
     Dosage: 25 UG (ACID) / THYRAX DUOTAB TABLET 0.025 MG

REACTIONS (3)
  - Product substitution issue [Unknown]
  - Condition aggravated [Recovering/Resolving]
  - Macular degeneration [Recovering/Resolving]
